FAERS Safety Report 6931715-9 (Version None)
Quarter: 2010Q3

REPORT INFORMATION
  Report Type: 
  Country: None (occurrence: None)
  Receive Date: 20100812
  Receipt Date: 20090619
  Transmission Date: 20110219
  Serious: No
  Sender: FDA-Public Use
  Company Number: 2009-00154

PATIENT
  Age: 53 Year
  Sex: Female
  Weight: 89.8122 kg

DRUGS (1)
  1. ZICAM HEALTHY Z-SSENTIALS [Suspect]
     Dosage: QD X 9 DAYS
     Dates: start: 20090518, end: 20090527

REACTIONS (2)
  - AGEUSIA [None]
  - ANOSMIA [None]
